FAERS Safety Report 15346815 (Version 1)
Quarter: 2018Q3

REPORT INFORMATION
  Report Type: Spontaneous
  Country: FR (occurrence: FR)
  Receive Date: 20180904
  Receipt Date: 20180904
  Transmission Date: 20181010
  Serious: Yes (Hospitalization)
  Sender: FDA-Public Use
  Company Number: PHHY2018FR086127

PATIENT
  Age: 95 Year
  Sex: Female

DRUGS (7)
  1. ALLOPURINOL. [Suspect]
     Active Substance: ALLOPURINOL
     Indication: MEDICATION ERROR
     Dosage: 100 MG, TOTAL
     Route: 048
     Dates: start: 20180731
  2. PANTOPRAZOLE [Suspect]
     Active Substance: PANTOPRAZOLE
     Indication: MEDICATION ERROR
     Dosage: 40 MG, TOTAL
     Route: 048
     Dates: start: 20180731
  3. BISOPROLOL [Suspect]
     Active Substance: BISOPROLOL
     Indication: MEDICATION ERROR
     Dosage: 5 MG, TOTAL
     Route: 048
     Dates: start: 20180731
  4. OFLOCET [Suspect]
     Active Substance: OFLOXACIN
     Indication: MEDICATION ERROR
     Dosage: 200 MG, TOTAL
     Route: 048
     Dates: start: 20180731
  5. IRBESARTAN. [Suspect]
     Active Substance: IRBESARTAN
     Indication: MEDICATION ERROR
     Dosage: 150 MG, TOTAL
     Route: 048
     Dates: start: 20180731
  6. EUPRESSYL [Suspect]
     Active Substance: URAPIDIL
     Indication: MEDICATION ERROR
     Dosage: 30 MG, TOTAL
     Route: 048
     Dates: start: 20180731
  7. LERCAN [Suspect]
     Active Substance: LERCANIDIPINE
     Indication: MEDICATION ERROR
     Dosage: 10 MG, TOTAL
     Route: 048
     Dates: start: 20180731

REACTIONS (3)
  - Bradycardia [Recovered/Resolved]
  - Medication error [Recovered/Resolved]
  - Hypotension [Recovered/Resolved]

NARRATIVE: CASE EVENT DATE: 20180731
